FAERS Safety Report 20842623 (Version 1)
Quarter: 2022Q2

REPORT INFORMATION
  Report Type: Other
  Country: US (occurrence: None)
  Receive Date: 20220518
  Receipt Date: 20220518
  Transmission Date: 20220720
  Serious: Yes (Life-Threatening, Hospitalization)
  Sender: FDA-Public Use
  Company Number: US-ROCHE-3091206

PATIENT
  Age: 49 Year
  Sex: Female
  Weight: 79.904 kg

DRUGS (3)
  1. OCREVUS [Suspect]
     Active Substance: OCRELIZUMAB
     Indication: Primary progressive multiple sclerosis
     Dosage: ONGOING NO?PRESCRIBED AS OCREVUS 300MG IV DAY 1 AND DAY 15 THAN 600MG IV Q 24 WEEKS
     Route: 042
     Dates: start: 201709
  2. OCREVUS [Suspect]
     Active Substance: OCRELIZUMAB
     Indication: Relapsing multiple sclerosis
  3. BACLOFEN [Suspect]
     Active Substance: BACLOFEN
     Indication: Multiple sclerosis
     Dosage: CONTINUOUS PUMP
     Route: 037

REACTIONS (5)
  - Pneumonia [Recovered/Resolved]
  - Drug interaction [Unknown]
  - Respiratory arrest [Unknown]
  - Overdose [Unknown]
  - Diaphragm muscle weakness [Not Recovered/Not Resolved]

NARRATIVE: CASE EVENT DATE: 20220326
